FAERS Safety Report 8967732 (Version 1)
Quarter: 2012Q4

REPORT INFORMATION
  Report Type: Spontaneous
  Country: FR (occurrence: None)
  Receive Date: 20121210
  Receipt Date: 20121210
  Transmission Date: 20130627
  Serious: Yes (Death, Hospitalization)
  Sender: FDA-Public Use
  Company Number: DKLU1086803

PATIENT
  Age: 33 Year
  Sex: Male

DRUGS (14)
  1. ONFI [Suspect]
     Route: 048
     Dates: start: 20121031, end: 20121112
  2. KALETRA [Suspect]
     Route: 048
     Dates: start: 20121024, end: 20121112
  3. ANTIVIRAL (UNSPECIFIED) [Suspect]
     Route: 048
     Dates: start: 20121024, end: 20121112
  4. LAMOTRIGINE [Suspect]
     Route: 048
  5. BACTRIM [Suspect]
     Route: 048
     Dates: start: 20120923, end: 20121112
  6. FLUCONAZOLE [Suspect]
     Route: 048
     Dates: start: 20120929, end: 20121112
  7. AUGMENTIN [Suspect]
     Route: 048
     Dates: start: 201211, end: 201211
  8. INTERLEUKINS [Suspect]
     Route: 058
     Dates: start: 20121101, end: 20121101
  9. INTERLEUKINS [Suspect]
     Route: 058
     Dates: start: 20121109, end: 20121109
  10. DARUNAVIR (DARUNAVIR) [Concomitant]
  11. EMTRICITABINE (EMTRICITABINE) [Concomitant]
  12. NORVIR (RITONAVIR) [Concomitant]
  13. TRIFLUCAN (FLUCONAZOLE) [Concomitant]
  14. MOTILIUM [Concomitant]

REACTIONS (7)
  - Apnoea [None]
  - Cardiac arrest [None]
  - Bronchial obstruction [None]
  - Decreased appetite [None]
  - Weight decreased [None]
  - Progressive multifocal leukoencephalopathy [None]
  - Condition aggravated [None]
